FAERS Safety Report 12779965 (Version 1)
Quarter: 2016Q3

REPORT INFORMATION
  Report Type: Spontaneous
  Country: HR (occurrence: HR)
  Receive Date: 20160926
  Receipt Date: 20160926
  Transmission Date: 20161109
  Serious: Yes (Hospitalization, Other)
  Sender: FDA-Public Use
  Company Number: HR-TEVA-693423ACC

PATIENT
  Sex: Male

DRUGS (5)
  1. TRITACE [Suspect]
     Active Substance: RAMIPRIL
     Route: 048
     Dates: start: 20160620, end: 20160620
  2. NEBIVOLOL PLIVA [Suspect]
     Active Substance: NEBIVOLOL HYDROCHLORIDE
     Route: 048
     Dates: start: 20160620, end: 20160620
  3. NORMABEL [Suspect]
     Active Substance: DIAZEPAM
     Route: 048
     Dates: start: 20160620, end: 20160620
  4. FEVARIN [Suspect]
     Active Substance: FLUVOXAMINE MALEATE
     Route: 048
     Dates: start: 20160620, end: 20160620
  5. LEPONEX [Suspect]
     Active Substance: CLOZAPINE
     Route: 048
     Dates: start: 20160620, end: 20160620

REACTIONS (5)
  - Coma [Unknown]
  - Suicide attempt [Unknown]
  - Hypotension [Unknown]
  - Respiratory depression [Unknown]
  - Intentional overdose [Unknown]

NARRATIVE: CASE EVENT DATE: 20160620
